FAERS Safety Report 19762990 (Version 2)
Quarter: 2021Q3

REPORT INFORMATION
  Report Type: Spontaneous
  Country: US (occurrence: US)
  Receive Date: 20210830
  Receipt Date: 20210923
  Transmission Date: 20211014
  Serious: No
  Sender: FDA-Public Use
  Company Number: US-BAYER-2021-200942

PATIENT
  Sex: Male

DRUGS (1)
  1. CLARITIN [Suspect]
     Active Substance: LORATADINE
     Indication: PRODUCT USED FOR UNKNOWN INDICATION
     Dosage: 1 DF
     Route: 048
     Dates: start: 20210731, end: 202108

REACTIONS (4)
  - Drug ineffective [Recovered/Resolved]
  - Product solubility abnormal [None]
  - Suspected product contamination [None]
  - Mouth injury [Recovered/Resolved]

NARRATIVE: CASE EVENT DATE: 2021
